FAERS Safety Report 22169019 (Version 1)
Quarter: 2023Q2

REPORT INFORMATION
  Report Type: Report from Study
  Country: CA (occurrence: CA)
  Receive Date: 20230404
  Receipt Date: 20230404
  Transmission Date: 20230721
  Serious: Yes (Other)
  Sender: FDA-Public Use
  Company Number: CA-BIOGEN-2023BI01196793

PATIENT
  Sex: Female

DRUGS (1)
  1. TECFIDERA [Suspect]
     Active Substance: DIMETHYL FUMARATE
     Indication: Multiple sclerosis
     Route: 050
     Dates: start: 20130925

REACTIONS (2)
  - Breast cancer stage I [Recovered/Resolved]
  - Magnetic resonance imaging abnormal [Not Recovered/Not Resolved]

NARRATIVE: CASE EVENT DATE: 20190101
